FAERS Safety Report 8816166 (Version 6)
Quarter: 2013Q3

REPORT INFORMATION
  Report Type: Spontaneous
  Country: US (occurrence: US)
  Receive Date: 20120929
  Receipt Date: 20130829
  Transmission Date: 20140515
  Serious: No
  Sender: FDA-Public Use
  Company Number: US-009507513-1209USA010730

PATIENT
  Age: 57 Year
  Sex: Male

DRUGS (3)
  1. PEG-INTRON [Suspect]
     Indication: HEPATITIS C
     Dosage: REDIPEN
     Dates: start: 20120922, end: 20130706
  2. REBETOL [Suspect]
     Indication: HEPATITIS C
     Dosage: UNK
     Dates: start: 20120922, end: 20130706
  3. TELAPREVIR [Suspect]
     Indication: HEPATITIS C
     Dosage: UNK
     Dates: start: 20120922, end: 20121215

REACTIONS (16)
  - Arthropathy [Unknown]
  - Back pain [Unknown]
  - Arthralgia [Unknown]
  - Influenza [Unknown]
  - Epistaxis [Unknown]
  - Weight decreased [Unknown]
  - Hepatitis C [Unknown]
  - Drug ineffective [Unknown]
  - Malaise [Unknown]
  - Influenza like illness [Unknown]
  - Fatigue [Unknown]
  - Malaise [Unknown]
  - Nausea [Unknown]
  - Depression [Unknown]
  - Pyrexia [Unknown]
  - Influenza like illness [Unknown]
